FAERS Safety Report 5806271-9 (Version None)
Quarter: 2008Q3

REPORT INFORMATION
  Report Type: 
  Country: None (occurrence: None)
  Receive Date: 20080708
  Receipt Date: 20080626
  Transmission Date: 20090109
  Serious: Yes (Other)
  Sender: FDA-Public Use
  Company Number: 2008SP013255

PATIENT
  Sex: Male
  Weight: 57.6068 kg

DRUGS (6)
  1. PEG-INTRON [Suspect]
     Indication: HEPATITIS C
     Dosage: QW; SC
     Route: 058
     Dates: start: 20070720, end: 20080509
  2. TARIBAVIRIN [Suspect]
     Indication: HEPATITIS C
     Dosage: 1400 MG; QD; PO
     Route: 048
     Dates: start: 20070720, end: 20080514
  3. MEGACE [Concomitant]
  4. ALBUTEROL [Concomitant]
  5. MAALOX [Concomitant]
  6. ATARAX [Concomitant]

REACTIONS (8)
  - ADENOCARCINOMA [None]
  - ANOREXIA [None]
  - DYSPHAGIA [None]
  - GASTRIC ULCER [None]
  - ODYNOPHAGIA [None]
  - OESOPHAGEAL MASS [None]
  - SQUAMOUS CELL CARCINOMA [None]
  - THROMBOCYTOPENIA [None]
